FAERS Safety Report 9419307 (Version 1)
Quarter: 2013Q3

REPORT INFORMATION
  Report Type: Spontaneous
  Country: US (occurrence: US)
  Receive Date: 20130725
  Receipt Date: 20130725
  Transmission Date: 20140515
  Serious: Yes (Hospitalization)
  Sender: FDA-Public Use
  Company Number: US-GLAXOSMITHKLINE-A1006932A

PATIENT
  Age: 16 Year
  Sex: Female

DRUGS (3)
  1. LAMICTAL XR [Suspect]
     Indication: CONVULSION
     Dosage: 100MG PER DAY
     Route: 048
     Dates: start: 201003, end: 201004
  2. FOLIC ACID [Concomitant]
     Dosage: 1MG PER DAY
     Route: 048
  3. TRILEPTAL [Concomitant]
     Indication: CONVULSION
     Dosage: 150MG TWICE PER DAY
     Route: 048

REACTIONS (1)
  - Stevens-Johnson syndrome [Recovering/Resolving]
